FAERS Safety Report 23797640 (Version 1)
Quarter: 2024Q2

REPORT INFORMATION
  Report Type: Report from Study
  Country: CA (occurrence: None)
  Receive Date: 20240430
  Receipt Date: 20240430
  Transmission Date: 20240716
  Serious: Yes (Hospitalization)
  Sender: FDA-Public Use
  Company Number: 2024A097773

PATIENT
  Sex: Female

DRUGS (6)
  1. TEZEPELUMAB-EKKO [Suspect]
     Active Substance: TEZEPELUMAB-EKKO
     Indication: Asthma
     Route: 058
     Dates: start: 20221222
  2. SINGULAIR [Concomitant]
     Active Substance: MONTELUKAST SODIUM
  3. VENTOLIN [Concomitant]
     Active Substance: ALBUTEROL SULFATE
     Dosage: AS REQUIRED
  4. GLYCOPYRROLATE [Concomitant]
     Active Substance: GLYCOPYRROLATE
     Dosage: 1 INH DIE
  5. ALVESCO [Concomitant]
     Active Substance: CICLESONIDE
     Dosage: 1 INH BID
  6. ZENHALE [Concomitant]
     Active Substance: FORMOTEROL FUMARATE\MOMETASONE FUROATE
     Dosage: 2 INHS BID

REACTIONS (3)
  - Diarrhoea [Not Recovered/Not Resolved]
  - Vomiting [Unknown]
  - Malaise [Unknown]
